FAERS Safety Report 23512473 (Version 1)
Quarter: 2024Q1

REPORT INFORMATION
  Report Type: Spontaneous
  Country: US (occurrence: US)
  Receive Date: 20240212
  Receipt Date: 20240212
  Transmission Date: 20240410
  Serious: Yes (Hospitalization)
  Sender: FDA-Public Use
  Company Number: US-MYLANLABS-2024M1013636

PATIENT
  Age: 40 Year
  Sex: Female

DRUGS (2)
  1. BUDESONIDE [Suspect]
     Active Substance: BUDESONIDE
     Indication: Haematuria
     Dosage: 16 MILLIGRAM, QD
     Route: 048
     Dates: start: 20230707
  2. BUDESONIDE [Suspect]
     Active Substance: BUDESONIDE
     Indication: IgA nephropathy

REACTIONS (3)
  - Abdominal discomfort [Unknown]
  - Hypophagia [Unknown]
  - Product dose omission issue [Unknown]

NARRATIVE: CASE EVENT DATE: 20240101
